FAERS Safety Report 17160732 (Version 4)
Quarter: 2020Q1

REPORT INFORMATION
  Report Type: Spontaneous
  Country: US (occurrence: CA)
  Receive Date: 20191216
  Receipt Date: 20200218
  Transmission Date: 20200409
  Serious: Yes (Hospitalization, Other)
  Sender: FDA-Public Use
  Company Number: CA-ACTELION-A-NJ2019-199199

PATIENT
  Age: 16 Year
  Sex: Female
  Weight: 48.98 kg

DRUGS (7)
  1. VOLIBRIS [Suspect]
     Active Substance: AMBRISENTAN
     Indication: PRODUCT USED FOR UNKNOWN INDICATION
     Dosage: 10 MG, QD
     Route: 048
     Dates: start: 20190327
  2. TEGRETOL [Suspect]
     Active Substance: CARBAMAZEPINE
     Indication: SEIZURE
     Dosage: 1 DF, BID
     Route: 048
  3. CLOBAZAM. [Concomitant]
     Active Substance: CLOBAZAM
  4. TEGRETOL [Suspect]
     Active Substance: CARBAMAZEPINE
     Dosage: 400 MG, BID
     Route: 048
  5. UPTRAVI [Suspect]
     Active Substance: SELEXIPAG
     Indication: PULMONARY ARTERIAL HYPERTENSION
     Dosage: 1400 MCG
     Route: 048
     Dates: start: 20180712
  6. ADCIRCA [Suspect]
     Active Substance: TADALAFIL
     Indication: PULMONARY ARTERIAL HYPERTENSION
     Dosage: 40 MG, QD
     Route: 048
     Dates: start: 20190327
  7. TEGRETOL [Suspect]
     Active Substance: CARBAMAZEPINE
     Dosage: 300 MG, BID
     Route: 048
     Dates: start: 200909

REACTIONS (19)
  - Pulse abnormal [Unknown]
  - Systolic dysfunction [Unknown]
  - Syncope [Unknown]
  - Dizziness [Unknown]
  - Epistaxis [Unknown]
  - Mitral valve prolapse [Unknown]
  - Pneumonia [Recovering/Resolving]
  - Generalised tonic-clonic seizure [Unknown]
  - Vomiting [Unknown]
  - Hypertension [Recovering/Resolving]
  - Loss of consciousness [Unknown]
  - Fatigue [Unknown]
  - Pyrexia [Unknown]
  - Rhinorrhoea [Unknown]
  - Right ventricular dilatation [Unknown]
  - Cardiac arrest [Unknown]
  - Pallor [Unknown]
  - Kidney infection [Unknown]
  - Metapneumovirus infection [Recovering/Resolving]

NARRATIVE: CASE EVENT DATE: 20191118
